FAERS Safety Report 19079242 (Version 2)
Quarter: 2021Q2

REPORT INFORMATION
  Report Type: Spontaneous
  Country: NL (occurrence: NL)
  Receive Date: 20210331
  Receipt Date: 20210421
  Transmission Date: 20210717
  Serious: Yes (Other)
  Sender: FDA-Public Use
  Company Number: NL-TEVA-2021-NL-1895075

PATIENT
  Age: 64 Year
  Sex: Male
  Weight: 79 kg

DRUGS (3)
  1. BETAHISTINE TABLET 16MG / BRAND NAME NOT SPECIFIED [Concomitant]
     Dosage: 16 MG (MILLIGRAM):THERAPY START DATE:ASKED BUT UNKNOWN:THERAPY END DATE :ASKED BUT UNKNOWN
  2. IRBESARTAN TABLET 150MG / BRAND NAME NOT SPECIFIED [Concomitant]
     Active Substance: IRBESARTAN
     Dosage: 150 MG (MILLIGRAM):THERAPY START DATE:ASKED BUT UNKNOWN:THERAPY END DATE :ASKED BUT UNKNOWN
  3. EZETIMIB TABLET 10MG / BRAND NAME NOT SPECIFIED [Suspect]
     Active Substance: EZETIMIBE
     Indication: HYPERCHOLESTEROLAEMIA
     Dosage: 1 DOSAGE FORMS DAILY; THERAPY END DATE :ASKED BUT UNKNOWN
     Dates: start: 202011

REACTIONS (4)
  - Syncope [Recovered/Resolved]
  - Chills [Recovered/Resolved]
  - Malaise [Recovered/Resolved]
  - Fatigue [Recovered/Resolved]

NARRATIVE: CASE EVENT DATE: 20210305
